FAERS Safety Report 11518782 (Version 1)
Quarter: 2015Q3

REPORT INFORMATION
  Report Type: Report from Study
  Country: US (occurrence: US)
  Receive Date: 20150917
  Receipt Date: 20150917
  Transmission Date: 20151125
  Serious: Yes (Death, Other)
  Sender: FDA-Public Use
  Company Number: US-MYLANLABS-2015M1026241

PATIENT
  Sex: Female

DRUGS (2)
  1. CLOZAPINE TABLETS, USP [Suspect]
     Active Substance: CLOZAPINE
     Dosage: 100 MG, HS
     Route: 065
  2. CLOZAPINE TABLETS, USP [Suspect]
     Active Substance: CLOZAPINE
     Indication: SCHIZOPHRENIA
     Dosage: 50 MG, AM

REACTIONS (2)
  - Death [Fatal]
  - Status epilepticus [Recovered/Resolved]

NARRATIVE: CASE EVENT DATE: 2015
